FAERS Safety Report 9885970 (Version 1)
Quarter: 2014Q1

REPORT INFORMATION
  Report Type: Report from Study
  Country: JP (occurrence: JP)
  Receive Date: 20140210
  Receipt Date: 20140210
  Transmission Date: 20141002
  Serious: Yes (Death, Hospitalization)
  Sender: FDA-Public Use
  Company Number: JP-GLAXOSMITHKLINE-B0923541A

PATIENT
  Age: 66 Year
  Sex: Female
  Weight: 32 kg

DRUGS (17)
  1. VOLIBRIS [Suspect]
     Indication: PULMONARY ARTERIAL HYPERTENSION
     Dosage: 7.5MG PER DAY
     Route: 048
     Dates: start: 20120405, end: 20121230
  2. FLOLAN [Suspect]
     Indication: PULMONARY ARTERIAL HYPERTENSION
     Route: 042
     Dates: start: 20120409
  3. FLOLAN [Suspect]
     Indication: PULMONARY ARTERIAL HYPERTENSION
     Route: 042
     Dates: start: 20120620, end: 20120624
  4. FLOLAN [Suspect]
     Indication: PULMONARY ARTERIAL HYPERTENSION
     Route: 042
     Dates: start: 20120625, end: 20121206
  5. FLOLAN [Suspect]
     Indication: PULMONARY ARTERIAL HYPERTENSION
     Route: 042
     Dates: start: 20121207
  6. VANCOMYCIN [Suspect]
     Route: 065
  7. CEFEPIME DIHYDROCHLORIDE HYDRATE [Suspect]
  8. ADCIRCA [Concomitant]
     Indication: PULMONARY ARTERIAL HYPERTENSION
     Route: 048
     Dates: end: 20121230
  9. REVATIO [Concomitant]
     Indication: PULMONARY ARTERIAL HYPERTENSION
     Route: 048
     Dates: end: 20121230
  10. ALFAROL [Concomitant]
     Indication: OSTEOPOROSIS PROPHYLAXIS
     Route: 048
     Dates: end: 20121230
  11. CRAVIT [Concomitant]
     Indication: INFECTION PROPHYLAXIS
     Route: 048
     Dates: start: 20120512, end: 20121230
  12. MYCOSYST [Concomitant]
     Indication: INFECTION PROPHYLAXIS
     Route: 048
     Dates: start: 20120512, end: 20121230
  13. PREDNISOLONE [Concomitant]
     Route: 048
     Dates: end: 20121230
  14. IMURAN [Concomitant]
     Route: 048
     Dates: end: 20121230
  15. MUCOSTA [Concomitant]
     Indication: GASTRITIS PROPHYLAXIS
     Route: 048
     Dates: end: 20121230
  16. TAKEPRON [Concomitant]
     Indication: GASTRITIS PROPHYLAXIS
     Route: 048
     Dates: end: 20121230
  17. BONALON [Concomitant]
     Indication: OSTEOPOROSIS PROPHYLAXIS
     Route: 048
     Dates: end: 20121230

REACTIONS (6)
  - Interstitial lung disease [Fatal]
  - Right ventricular failure [Fatal]
  - Pneumonia [Fatal]
  - Interstitial lung disease [Recovering/Resolving]
  - Epilepsy [Recovering/Resolving]
  - Thrombocytopenia [Not Recovered/Not Resolved]
